FAERS Safety Report 25888843 (Version 1)
Quarter: 2025Q4

REPORT INFORMATION
  Report Type: Spontaneous
  Country: US (occurrence: US)
  Receive Date: 20251007
  Receipt Date: 20251007
  Transmission Date: 20260117
  Serious: Yes (Hospitalization, Other)
  Sender: Kenvue
  Company Number: US-KENVUE-20251000391

PATIENT
  Age: 38 Year
  Sex: Male

DRUGS (1)
  1. ACETAMINOPHEN [Suspect]
     Active Substance: ACETAMINOPHEN
     Indication: Product used for unknown indication
     Dosage: 200 TABLET OF 500 MILLIGRAM
     Route: 065

REACTIONS (6)
  - Methaemoglobinaemia [Unknown]
  - Suicide attempt [Unknown]
  - Renal impairment [Recovered/Resolved]
  - Haemolytic anaemia [Unknown]
  - Transaminases increased [Unknown]
  - Intentional overdose [Unknown]
